FAERS Safety Report 10333608 (Version 1)
Quarter: 2014Q3

REPORT INFORMATION
  Report Type: Report from Study
  Country: US (occurrence: US)
  Receive Date: 20140723
  Receipt Date: 20140723
  Transmission Date: 20150326
  Serious: Yes (Other)
  Sender: FDA-Public Use
  Company Number: US-ROCHE-1437714

PATIENT
  Age: 17 Year
  Sex: Male
  Weight: 66.5 kg

DRUGS (2)
  1. SAIZEN [Concomitant]
     Active Substance: SOMATROPIN
     Route: 065
  2. NUTROPIN AQ [Suspect]
     Active Substance: SOMATROPIN
     Indication: GROWTH HORMONE DEFICIENCY
     Route: 058

REACTIONS (4)
  - Bone cyst [Unknown]
  - Growth retardation [Unknown]
  - Tonsillitis [Unknown]
  - Attention deficit/hyperactivity disorder [Unknown]

NARRATIVE: CASE EVENT DATE: 20140702
